FAERS Safety Report 6111895-8 (Version None)
Quarter: 2009Q1

REPORT INFORMATION
  Report Type: 
  Country: None (occurrence: None)
  Receive Date: 20090311
  Receipt Date: 20090204
  Transmission Date: 20090719
  Serious: Yes (Other)
  Sender: FDA-Public Use
  Company Number: ES-JNJFOC-20090200829

PATIENT
  Age: 27 Year
  Sex: Male

DRUGS (4)
  1. INVEGA [Suspect]
     Route: 048
  2. INVEGA [Suspect]
     Route: 048
  3. INVEGA [Suspect]
     Indication: SCHIZOPHRENIA, PARANOID TYPE
     Route: 048
  4. UNKNOWN DRUG [Concomitant]
     Indication: PROPHYLAXIS

REACTIONS (2)
  - DISTURBANCE IN SOCIAL BEHAVIOUR [None]
  - IMPULSIVE BEHAVIOUR [None]
